FAERS Safety Report 7335257-0 (Version None)
Quarter: 2011Q1

REPORT INFORMATION
  Report Type: 
  Country: None (occurrence: None)
  Receive Date: 20110307
  Receipt Date: 20110228
  Transmission Date: 20110831
  Serious: No
  Sender: FDA-Public Use
  Company Number: US-PFIZER INC-2007084859

PATIENT
  Sex: Female
  Weight: 75 kg

DRUGS (11)
  1. CHANTIX [Suspect]
     Indication: SMOKING CESSATION THERAPY
     Dosage: 1 MG, 2X/DAY
     Route: 048
     Dates: start: 20070921, end: 20071003
  2. LASIX [Concomitant]
     Indication: SWELLING
     Dosage: 20 MG, 1X/DAY
     Route: 048
  3. COUMADIN [Concomitant]
     Dosage: UNK
  4. LIPITOR [Suspect]
     Indication: HYPERLIPIDAEMIA
     Dosage: 40 MG, 1X/DAY
     Route: 048
     Dates: start: 20030101
  5. ADVAIR DISKUS 100/50 [Concomitant]
     Dosage: UNK
  6. DILTIAZEM [Concomitant]
     Dosage: 300 MG, 1X/DAY
  7. FUROSEMIDE [Concomitant]
     Dosage: 20 MG, 1X/DAY
  8. ALLOPURINOL [Concomitant]
     Dosage: 300 MG, 1X/DAY
  9. WARFARIN SODIUM [Concomitant]
     Indication: ATRIAL FIBRILLATION
     Dosage: UNK
  10. TIAZAC [Concomitant]
     Indication: HYPERTENSION
     Dosage: UNK
     Route: 048
  11. SPIRIVA [Concomitant]
     Dosage: UNK

REACTIONS (4)
  - ASTHENIA [None]
  - JOINT SWELLING [None]
  - HYPERKERATOSIS [None]
  - MYALGIA [None]
